FAERS Safety Report 10771312 (Version 5)
Quarter: 2015Q2

REPORT INFORMATION
  Report Type: Spontaneous
  Country: JP (occurrence: JP)
  Receive Date: 20150206
  Receipt Date: 20150421
  Transmission Date: 20150821
  Serious: Yes (Hospitalization, Other)
  Sender: FDA-Public Use
  Company Number: JP-B.I. PHARMACEUTICALS,INC./RIDGEFIELD-2015-BI-06063NB

PATIENT
  Age: 72 Year
  Sex: Female
  Weight: 61.4 kg

DRUGS (2)
  1. MINOMYCIN [Concomitant]
     Active Substance: MINOCYCLINE HYDROCHLORIDE
     Indication: FOLLICULITIS
     Dosage: 50 MG
     Route: 048
     Dates: start: 20141209, end: 20150129
  2. GILOTRIF [Suspect]
     Active Substance: AFATINIB
     Indication: LUNG ADENOCARCINOMA
     Dosage: 40 MG
     Route: 048
     Dates: start: 20141106, end: 20150123

REACTIONS (8)
  - Platelet count decreased [Not Recovered/Not Resolved]
  - Hepatic function abnormal [Not Recovered/Not Resolved]
  - Decreased appetite [Unknown]
  - Folliculitis [Not Recovered/Not Resolved]
  - Diarrhoea [Unknown]
  - Dehydration [Unknown]
  - Disseminated intravascular coagulation [Unknown]
  - Interstitial lung disease [Not Recovered/Not Resolved]

NARRATIVE: CASE EVENT DATE: 20150119
